FAERS Safety Report 20044141 (Version 1)
Quarter: 2021Q4

REPORT INFORMATION
  Report Type: Other
  Country: AU (occurrence: AU)
  Receive Date: 20211108
  Receipt Date: 20211108
  Transmission Date: 20220303
  Serious: Yes (Life-Threatening, Other)
  Sender: FDA-Public Use
  Company Number: AU-COLLEGIUM PHARMACEUTICAL, INC.-2021CGM01160

PATIENT
  Age: 50 Year
  Sex: Female

DRUGS (1)
  1. TAPENTADOL [Suspect]
     Active Substance: TAPENTADOL
     Indication: Procedural pain

REACTIONS (12)
  - Affect lability [Recovered/Resolved]
  - Apnoea [Recovered/Resolved]
  - Blood pressure fluctuation [Recovered/Resolved]
  - Arrhythmia [Recovered/Resolved]
  - Body temperature fluctuation [Recovered/Resolved]
  - Cognitive disorder [Recovered/Resolved]
  - Pain [Recovered/Resolved]
  - Autonomic nervous system imbalance [Recovered/Resolved]
  - Adverse event [Recovered/Resolved]
  - Hyperhidrosis [Recovered/Resolved]
  - Panic attack [Recovered/Resolved]
  - Asthenia [Recovered/Resolved]

NARRATIVE: CASE EVENT DATE: 20200806
